FAERS Safety Report 14720737 (Version 2)
Quarter: 2018Q2

REPORT INFORMATION
  Report Type: Report from Study
  Country: CN (occurrence: CN)
  Receive Date: 20180405
  Receipt Date: 20180430
  Transmission Date: 20180711
  Serious: Yes (Hospitalization)
  Sender: FDA-Public Use
  Company Number: CN-ROCHE-2099035

PATIENT
  Age: 55 Year
  Sex: Male
  Weight: 67 kg

DRUGS (6)
  1. TROPISETRON HYDROCHLORIDE [Concomitant]
     Active Substance: TROPISETRON HYDROCHLORIDE
     Route: 042
     Dates: start: 20180227, end: 20180301
  2. LANSOPRAZOLE. [Concomitant]
     Active Substance: LANSOPRAZOLE
     Route: 042
     Dates: start: 20180227, end: 20180301
  3. FRUCTOSE [Concomitant]
     Active Substance: FRUCTOSE
     Route: 042
     Dates: start: 20180227, end: 20180227
  4. CARBOPLATIN. [Suspect]
     Active Substance: CARBOPLATIN
     Indication: SMALL CELL LUNG CANCER EXTENSIVE STAGE
     Dosage: AREA UNDER THE CURVE (AUC) OF 5 MG/ML/MIN, ADMINISTERED ON DAY 1 OF EACH 21-DAY CYCLE ?DATE OF MOST
     Route: 042
     Dates: start: 20180115
  5. ATEZOLIZUMAB. [Suspect]
     Active Substance: ATEZOLIZUMAB
     Indication: SMALL CELL LUNG CANCER EXTENSIVE STAGE
     Dosage: DATE OF MOST RECENT DOSE OF ATEZOLIZUMAB PRIOR TO SAE ONSET: 27/FEB/2018
     Route: 042
     Dates: start: 20180115
  6. ETOPOSIDE. [Suspect]
     Active Substance: ETOPOSIDE
     Indication: SMALL CELL LUNG CANCER EXTENSIVE STAGE
     Dosage: DATE OF MOST RECENT DOSE OF  ETOPOSIDE PRIOR TO AE ONSET: 01/MAR/2018 (180 MG)
     Route: 042
     Dates: start: 20180115

REACTIONS (1)
  - Blood bilirubin increased [Not Recovered/Not Resolved]

NARRATIVE: CASE EVENT DATE: 20180326
